FAERS Safety Report 7337227-5 (Version None)
Quarter: 2011Q1

REPORT INFORMATION
  Report Type: 
  Country: None (occurrence: None)
  Receive Date: 20110308
  Receipt Date: 20110228
  Transmission Date: 20110831
  Serious: No
  Sender: FDA-Public Use
  Company Number: US-PFIZER INC-2010134118

PATIENT
  Sex: Female
  Weight: 78.458 kg

DRUGS (10)
  1. HUMALOG [Concomitant]
     Dosage: 100 IU/ML, 10 UNIT WITH MAJOR MEAL
     Route: 058
     Dates: start: 20100219
  2. LISINOPRIL [Concomitant]
     Dosage: 10 MG, 1X/DAY
     Route: 048
     Dates: start: 20060629
  3. LANTUS [Concomitant]
     Dosage: 100 IU/ML, 34 UNIT DAILY
     Route: 058
     Dates: start: 20080311
  4. MELOXICAM [Concomitant]
     Dosage: 15 MG, 1X/DAY
     Route: 048
     Dates: start: 20090731
  5. HYDROCODONE/ACETAMINOPHEN [Concomitant]
     Indication: PAIN
     Dosage: 7.5 / 500 MG, 1 TABLET AT BED TIME
     Route: 048
     Dates: start: 20080701
  6. CELEBREX [Concomitant]
     Dosage: UNK
  7. OMEPRAZOLE [Concomitant]
     Dosage: 20 MG, 1X/DAY
     Route: 048
     Dates: start: 20060629
  8. DIFLUCAN [Concomitant]
     Indication: VAGINAL DISCHARGE
     Dosage: UNK
  9. PRILOSEC [Concomitant]
     Dosage: UNK
  10. LYRICA [Suspect]
     Indication: DIABETIC NEUROPATHY
     Dosage: 75 MG, 1X/DAY
     Route: 048
     Dates: start: 20101007

REACTIONS (1)
  - HYPOAESTHESIA [None]
